FAERS Safety Report 16999369 (Version 1)
Quarter: 2019Q4

REPORT INFORMATION
  Report Type: Spontaneous
  Country: US (occurrence: US)
  Receive Date: 20191105
  Receipt Date: 20191105
  Transmission Date: 20200122
  Serious: No
  Sender: FDA-Public Use
  Company Number: None

PATIENT
  Age: 61 Year
  Sex: Female
  Weight: 106.65 kg

DRUGS (6)
  1. ASPERCREME WITH LIDOCAINE [Suspect]
     Active Substance: LIDOCAINE
     Indication: ARTHRALGIA
     Route: 061
     Dates: start: 20191105, end: 20191105
  2. DEXILANT [Concomitant]
     Active Substance: DEXLANSOPRAZOLE
  3. VITAMIN D [Concomitant]
     Active Substance: VITAMIN D NOS
  4. METOPROLOL. [Concomitant]
     Active Substance: METOPROLOL
  5. IRBESARTAN. [Concomitant]
     Active Substance: IRBESARTAN
  6. HCTZ [Concomitant]
     Active Substance: HYDROCHLOROTHIAZIDE

REACTIONS (4)
  - Arthralgia [None]
  - Skin atrophy [None]
  - Skin discolouration [None]
  - Pain of skin [None]

NARRATIVE: CASE EVENT DATE: 20191105
